FAERS Safety Report 11899136 (Version 2)
Quarter: 2016Q1

REPORT INFORMATION
  Report Type: Spontaneous
  Country: GB (occurrence: GB)
  Receive Date: 20160108
  Receipt Date: 20160202
  Transmission Date: 20160526
  Serious: Yes (Other)
  Sender: FDA-Public Use
  Company Number: GB-PFIZER INC-2016003304

PATIENT
  Age: 25 Year
  Sex: Female

DRUGS (2)
  1. ADRENALINE /00003901/ [Suspect]
     Active Substance: EPINEPHRINE
     Indication: LOCAL ANAESTHESIA
     Dosage: 1:80,000 ADRENALINE
  2. LIDOCAINE HCL [Suspect]
     Active Substance: LIDOCAINE HYDROCHLORIDE
     Indication: LOCAL ANAESTHESIA
     Dosage: 2% LIGNOCAINE 2.2 ML WITH 1:80,000 ADRENALINE

REACTIONS (6)
  - Blindness [Recovered/Resolved]
  - Amaurosis [Recovered/Resolved]
  - Mydriasis [Recovered/Resolved]
  - Eyelid ptosis [Recovered/Resolved]
  - Ophthalmoplegia [Recovered/Resolved]
  - Pallor [Recovered/Resolved]
